FAERS Safety Report 9677249 (Version 2)
Quarter: 2013Q4

REPORT INFORMATION
  Report Type: Spontaneous
  Country: None (occurrence: IT)
  Receive Date: 20131108
  Receipt Date: 20131112
  Transmission Date: 20140711
  Serious: Yes (Life-Threatening)
  Sender: FDA-Public Use
  Company Number: IT-ACCORD-020191

PATIENT
  Age: 72 Year
  Sex: Male
  Weight: 93 kg

DRUGS (5)
  1. PACLITAXEL [Suspect]
     Indication: METASTASIS
     Dosage: FREQUENCY: EVERY OTHER DAY
     Dates: start: 20130904, end: 20130925
  2. DEXAMETHASONE [Concomitant]
     Dates: start: 20130925, end: 20130925
  3. ALOXI [Concomitant]
     Dosage: ALOXI - 250 MCG SOLUTION FOR INJECTION FOR INTRAVENOUS USE 5 ML?GLASS AMPOULE 1 VIAL AMPOULE (HELSI
     Dates: start: 20130925, end: 20130925
  4. TRIMETON [Concomitant]
     Dosage: TRIMETON - ^10 MG/1 ML SOLUTION FOR INJECTION^ 5 VIALS 1 ML (MSD?ITALIA S.R.L.) (R06AB04)
     Dates: start: 20130925, end: 20130925
  5. RANITIDINE A [Concomitant]
     Dates: start: 20130925, end: 20130925

REACTIONS (1)
  - Anaphylactic shock [Unknown]
